FAERS Safety Report 9435294 (Version 1)
Quarter: 2013Q3

REPORT INFORMATION
  Report Type: Spontaneous
  Country: NL (occurrence: None)
  Receive Date: 20130730
  Receipt Date: 20130730
  Transmission Date: 20140515
  Serious: Yes (Other)
  Sender: FDA-Public Use
  Company Number: 2013AP006828

PATIENT
  Sex: Male

DRUGS (1)
  1. CYCLOSPORIN [Suspect]
     Indication: PSORIATIC ARTHROPATHY
     Dates: start: 20040917, end: 20041116

REACTIONS (3)
  - Epistaxis [None]
  - Thrombocytopenia [None]
  - Haematochezia [None]
